FAERS Safety Report 5211495-8 (Version None)
Quarter: 2006Q4

REPORT INFORMATION
  Report Type: 
  Country: None (occurrence: None)
  Receive Date: 20061115
  Receipt Date: 20060123
  Transmission Date: 20070319
  Serious: No
  Sender: FDA-Public Use
  Company Number: 200610444BWH

PATIENT
  Sex: Male

DRUGS (9)
  1. SORAFENIB [Suspect]
     Dosage: 400 MG, BID, ORAL
     Route: 048
     Dates: start: 20051123
  2. DIGOXIN [Concomitant]
  3. ASPIRIN [Concomitant]
  4. TOPROL-XL [Concomitant]
  5. KLOR-CON [Concomitant]
  6. LISINOPRIL [Concomitant]
  7. VERAPAMIL [Concomitant]
  8. LASIX [Concomitant]
  9. NORVASC [Concomitant]

REACTIONS (1)
  - DRY SKIN [None]
